FAERS Safety Report 25072624 (Version 2)
Quarter: 2025Q2

REPORT INFORMATION
  Report Type: Spontaneous
  Country: JP (occurrence: JP)
  Receive Date: 20250313
  Receipt Date: 20250501
  Transmission Date: 20250716
  Serious: Yes (Other)
  Sender: NOVO NORDISK
  Company Number: JP-NOVOPROD-1386058

PATIENT
  Age: 60 Year
  Sex: Female

DRUGS (3)
  1. RYBELSUS [Suspect]
     Active Substance: SEMAGLUTIDE
     Indication: Type 2 diabetes mellitus
     Dosage: 3 MG, QD
     Route: 048
     Dates: start: 20250204
  2. KETOPROFEN [Concomitant]
     Active Substance: KETOPROFEN
     Dosage: 20 MG, QD
     Route: 062
  3. METGLUCO [Concomitant]
     Active Substance: METFORMIN HYDROCHLORIDE
     Indication: Type 2 diabetes mellitus
     Dosage: 750 MG, QD(250 MG IN THE MORNING, 500 MG IN THE EVENING)
     Route: 048
     Dates: end: 20250204

REACTIONS (4)
  - Micturition frequency decreased [Unknown]
  - Thirst [Unknown]
  - Dysgeusia [Unknown]
  - Wrong technique in product usage process [Unknown]

NARRATIVE: CASE EVENT DATE: 20250201
